FAERS Safety Report 6572374-7 (Version None)
Quarter: 2010Q1

REPORT INFORMATION
  Report Type: 
  Country: None (occurrence: None)
  Receive Date: 20100205
  Receipt Date: 20100201
  Transmission Date: 20100710
  Serious: Yes (Life-Threatening, Other)
  Sender: FDA-Public Use
  Company Number: US-CELGENEUS-163-21880-09091349

PATIENT
  Sex: Male

DRUGS (5)
  1. REVLIMID [Suspect]
     Indication: MULTIPLE MYELOMA
     Route: 048
     Dates: start: 20090707
  2. REVLIMID [Suspect]
     Route: 048
     Dates: start: 20090701, end: 20090911
  3. DEXAMETHASONE [Concomitant]
     Indication: DRUG USE FOR UNKNOWN INDICATION
     Route: 065
  4. COUMADIN [Concomitant]
     Indication: ATRIAL FIBRILLATION
     Route: 065
  5. COUMADIN [Concomitant]
     Indication: THROMBOSIS

REACTIONS (2)
  - ANAEMIA [None]
  - THROMBOCYTOPENIA [None]
